FAERS Safety Report 15121554 (Version 2)
Quarter: 2018Q3

REPORT INFORMATION
  Report Type: Spontaneous
  Country: IN (occurrence: IN)
  Receive Date: 20180709
  Receipt Date: 20180713
  Transmission Date: 20181010
  Serious: Yes (Death, Hospitalization, Other)
  Sender: FDA-Public Use
  Company Number: IN-BAYER-2018-128558

PATIENT
  Age: 67 Year
  Sex: Male

DRUGS (2)
  1. ULTRAVIST [Suspect]
     Active Substance: IOPROMIDE
     Indication: HEPATIC MASS
  2. ULTRAVIST [Suspect]
     Active Substance: IOPROMIDE
     Indication: COMPUTERISED TOMOGRAM
     Dosage: 60 ML, ONCE
     Dates: start: 20180704, end: 20180704

REACTIONS (4)
  - Pruritus generalised [None]
  - Laryngeal oedema [None]
  - Dyspnoea [None]
  - Circulatory collapse [Fatal]

NARRATIVE: CASE EVENT DATE: 20180704
